FAERS Safety Report 7758750-5 (Version None)
Quarter: 2011Q3

REPORT INFORMATION
  Report Type: 
  Country: None (occurrence: None)
  Receive Date: 20110919
  Receipt Date: 20110906
  Transmission Date: 20111222
  Serious: Yes (Other)
  Sender: FDA-Public Use
  Company Number: US-BAYER-201037830NA

PATIENT
  Age: 39 Year
  Sex: Female
  Weight: 79 kg

DRUGS (11)
  1. PREDNISOLONE ACETATE [Concomitant]
  2. ALESSE [Concomitant]
  3. VITAMIN D [Concomitant]
  4. YAZ [Suspect]
     Indication: PRODUCT USED FOR UNKNOWN INDICATION
     Route: 048
     Dates: start: 20081001, end: 20090601
  5. POTASSIUM CHLORIDE [Concomitant]
  6. CALCIUMCARBONAT [Concomitant]
  7. FUROSEMIDE [Concomitant]
  8. VENLAFAXINE HYDROCHLORIDE [Concomitant]
  9. TEMISARTAN [Concomitant]
     Indication: BLOOD PRESSURE MANAGEMENT
  10. HYDROCHLOROTHIAZIDE [Concomitant]
  11. ANTIINFECTIVES, OPHTHALMIC [Concomitant]

REACTIONS (2)
  - CHOLECYSTITIS [None]
  - CHOLECYSTECTOMY [None]
